FAERS Safety Report 10018872 (Version 1)
Quarter: 2014Q1

REPORT INFORMATION
  Report Type: Spontaneous
  Country: AU (occurrence: None)
  Receive Date: 20140312
  Receipt Date: 20140312
  Transmission Date: 20141002
  Serious: Yes (Other)
  Sender: FDA-Public Use
  Company Number: 2014P1002067

PATIENT
  Age: 64 Year
  Sex: Female

DRUGS (4)
  1. DIGOXIN [Suspect]
     Indication: STRESS CARDIOMYOPATHY
     Route: 042
  2. ADRENALINE [Suspect]
  3. AMIODARONE [Suspect]
     Indication: ATRIAL FIBRILLATION
     Route: 042
  4. ERYTHROMYCIN [Suspect]
     Route: 042

REACTIONS (5)
  - Bradyarrhythmia [None]
  - Hyperkalaemia [None]
  - Toxicity to various agents [None]
  - Cardioactive drug level above therapeutic [None]
  - Drug interaction [None]
